FAERS Safety Report 7089538-9 (Version None)
Quarter: 2010Q4

REPORT INFORMATION
  Report Type: 
  Country: None (occurrence: None)
  Receive Date: 20101108
  Receipt Date: 20101026
  Transmission Date: 20110411
  Serious: Yes (Hospitalization, Other)
  Sender: FDA-Public Use
  Company Number: US-ELI_LILLY_AND_COMPANY-US201010007185

PATIENT
  Sex: Male

DRUGS (1)
  1. FORTEO [Suspect]
     Indication: OSTEOPOROSIS
     Dosage: 20 UG, DAILY (1/D)
     Dates: end: 20101018

REACTIONS (11)
  - ADVERSE DRUG REACTION [None]
  - ASTHENIA [None]
  - BONE NEOPLASM MALIGNANT [None]
  - DECREASED APPETITE [None]
  - FALL [None]
  - GASTROINTESTINAL DISORDER [None]
  - ILL-DEFINED DISORDER [None]
  - INTESTINAL OBSTRUCTION [None]
  - METASTASIS [None]
  - NAUSEA [None]
  - NEOPLASM MALIGNANT [None]
